FAERS Safety Report 20358083 (Version 1)
Quarter: 2022Q1

REPORT INFORMATION
  Report Type: Report from Study
  Country: CA (occurrence: CA)
  Receive Date: 20220120
  Receipt Date: 20220120
  Transmission Date: 20220423
  Serious: Yes (Life-Threatening, Hospitalization, Other)
  Sender: FDA-Public Use
  Company Number: CA-PFIZER INC-202101033781

PATIENT
  Age: 41 Year
  Sex: Female
  Weight: 94 kg

DRUGS (11)
  1. ABROCITINIB [Suspect]
     Active Substance: ABROCITINIB
     Indication: Dermatitis atopic
     Dosage: 200 MG, DAILY
     Route: 048
     Dates: start: 20210525, end: 20210806
  2. DROSPIRENONE\ETHINYL ESTRADIOL [Suspect]
     Active Substance: DROSPIRENONE\ETHINYL ESTRADIOL
     Indication: Contraception
     Dosage: UNK, DAILY
     Route: 048
     Dates: start: 20210610, end: 20210809
  3. MODERNA COVID-19 VACCINE [Suspect]
     Active Substance: ELASOMERAN
     Indication: COVID-19 immunisation
     Dosage: 0.5 ML
     Route: 030
     Dates: start: 20210422, end: 20210422
  4. MODERNA COVID-19 VACCINE [Suspect]
     Active Substance: ELASOMERAN
     Dosage: 0.5 ML
     Route: 030
     Dates: start: 20210623, end: 20210623
  5. HYDROCORTISONE VALERATE [Concomitant]
     Active Substance: HYDROCORTISONE VALERATE
     Indication: Dermatitis atopic
     Dosage: 0.2 %, DAILY
     Route: 061
     Dates: start: 20210504
  6. ACETAMINOPHEN [Concomitant]
     Active Substance: ACETAMINOPHEN
     Indication: Headache
     Dosage: 1000 MG (2X 500MG),  AS NEEDED
     Route: 048
     Dates: start: 20210802
  7. ACETAMINOPHEN [Concomitant]
     Active Substance: ACETAMINOPHEN
     Dosage: 975 MG, AS NEEDED
     Dates: start: 20210807
  8. CETIRIZINE HYDROCHLORIDE [Concomitant]
     Active Substance: CETIRIZINE HYDROCHLORIDE
     Indication: Seasonal allergy
     Dosage: 20 MG, DAILY
     Route: 048
     Dates: start: 2015
  9. PANTOPRAZOLE [Concomitant]
     Active Substance: PANTOPRAZOLE
     Indication: Nausea
     Dosage: 40 MG, DAILY
     Route: 048
     Dates: start: 20210623
  10. PANTOPRAZOLE [Concomitant]
     Active Substance: PANTOPRAZOLE
     Indication: Gastrooesophageal reflux disease
  11. NAPROSYN [Concomitant]
     Active Substance: NAPROXEN
     Indication: Headache
     Dosage: 500 MG, AS NEEDED
     Route: 048
     Dates: start: 20210804

REACTIONS (2)
  - Cerebral venous thrombosis [Recovered/Resolved]
  - Thrombocytopenia [Recovered/Resolved]

NARRATIVE: CASE EVENT DATE: 20210807
